FAERS Safety Report 13941974 (Version 1)
Quarter: 2017Q3

REPORT INFORMATION
  Report Type: Spontaneous
  Country: GB (occurrence: GB)
  Receive Date: 20170906
  Receipt Date: 20170906
  Transmission Date: 20171127
  Serious: Yes (Other)
  Sender: FDA-Public Use
  Company Number: GB-MYLANLABS-2017M1054164

PATIENT
  Age: 84 Year
  Sex: Male

DRUGS (1)
  1. CLOZARIL [Suspect]
     Active Substance: CLOZAPINE
     Indication: SCHIZOPHRENIA
     Dosage: UNK
     Route: 048
     Dates: start: 20170815, end: 20170824

REACTIONS (3)
  - Platelet count decreased [Not Recovered/Not Resolved]
  - Somnolence [Unknown]
  - Terminal state [Unknown]

NARRATIVE: CASE EVENT DATE: 201708
